FAERS Safety Report 4548475-1 (Version None)
Quarter: 2005Q1

REPORT INFORMATION
  Report Type: 
  Country: None (occurrence: None)
  Receive Date: 20050106
  Receipt Date: 20041221
  Transmission Date: 20050727
  Serious: Yes (Hospitalization)
  Sender: FDA-Public Use
  Company Number: I04-341-079

PATIENT
  Age: 55 Year
  Sex: Male
  Weight: 91 kg

DRUGS (14)
  1. VELCADE [Suspect]
     Indication: MULTIPLE MYELOMA
     Dosage: 2.00 MG, SUBCUTANEOUS
     Route: 058
     Dates: start: 20040331, end: 20040513
  2. VELCADE [Suspect]
  3. DEXAMETHASONE [Suspect]
     Indication: MULTIPLE MYELOMA
     Dosage: 40.00 MG, ORAL
     Route: 048
  4. THALIDOMIDE (THALIDOMIDE) [Suspect]
     Indication: MULTIPLE MYELOMA
     Dosage: 200.00 MG, ORAL
     Route: 048
  5. CISPLATIN [Suspect]
     Indication: MULTIPLE MYELOMA
     Dosage: 20.00 MG,
  6. ADRIAMYCIN PFS [Suspect]
     Indication: MULTIPLE MYELOMA
     Dosage: 20.00 MG
  7. CYCLOPHOSPHAMIDE [Suspect]
     Indication: MULTIPLE MYELOMA
     Dosage: 788.00 MG
  8. ETOPOSIDE [Suspect]
     Indication: MULTIPLE MYELOMA
     Dosage: 79.00 MG, INTRAVENOUS
     Route: 042
  9. DIFLUCAN [Concomitant]
  10. ACYCLOVIR [Concomitant]
  11. TEQUIN [Concomitant]
  12. ZANTAC [Concomitant]
  13. LOVENOX [Concomitant]
  14. PROCRIT (ERYTHROPOIETIN) [Concomitant]

REACTIONS (8)
  - ATELECTASIS [None]
  - CHEST PAIN [None]
  - DIZZINESS [None]
  - DRUG EFFECT DECREASED [None]
  - ELECTROCARDIOGRAM ST SEGMENT ABNORMAL [None]
  - HYPERHIDROSIS [None]
  - HYPOTENSION [None]
  - SINUS TACHYCARDIA [None]
